FAERS Safety Report 11473704 (Version 1)
Quarter: 2015Q3

REPORT INFORMATION
  Report Type: Spontaneous
  Country: US (occurrence: US)
  Receive Date: 20150908
  Receipt Date: 20150908
  Transmission Date: 20151125
  Serious: Yes (Hospitalization)
  Sender: FDA-Public Use
  Company Number: US-B.I. PHARMACEUTICALS,INC./RIDGEFIELD-2015-BI-47702BP

PATIENT
  Age: 64 Year
  Sex: Male
  Weight: 77 kg

DRUGS (4)
  1. FLOMAX [Suspect]
     Active Substance: TAMSULOSIN HYDROCHLORIDE
     Indication: BENIGN PROSTATIC HYPERPLASIA
     Dosage: 0.4 MG
     Route: 048
     Dates: start: 2000, end: 201507
  2. NEXIUM [Concomitant]
     Active Substance: ESOMEPRAZOLE MAGNESIUM
     Indication: GASTROOESOPHAGEAL REFLUX DISEASE
     Dosage: 40 MG
     Route: 048
     Dates: start: 2011
  3. METOPROLOL [Concomitant]
     Active Substance: METOPROLOL
     Indication: VENTRICULAR EXTRASYSTOLES
     Dosage: 25 MG
     Route: 048
     Dates: start: 2013
  4. AVODART [Concomitant]
     Active Substance: DUTASTERIDE
     Indication: BENIGN PROSTATIC HYPERPLASIA
     Dosage: 0.5 MG
     Route: 048
     Dates: start: 2005

REACTIONS (1)
  - Wound [Not Recovered/Not Resolved]

NARRATIVE: CASE EVENT DATE: 20150820
